FAERS Safety Report 24294306 (Version 1)
Quarter: 2024Q3

REPORT INFORMATION
  Report Type: Spontaneous
  Country: US (occurrence: US)
  Receive Date: 20240906
  Receipt Date: 20240906
  Transmission Date: 20241017
  Serious: No
  Sender: DOMPE FARMACEUTICI
  Company Number: US-FARMAPROD-202406-2337

PATIENT
  Sex: Female

DRUGS (21)
  1. OXERVATE [Suspect]
     Active Substance: CENEGERMIN-BKBJ
     Indication: Neurotrophic keratopathy
     Route: 047
     Dates: start: 20240513
  2. METHOCARBAMOL [Concomitant]
     Active Substance: METHOCARBAMOL
  3. CALCIUM\CHOLECALCIFEROL [Concomitant]
     Active Substance: CALCIUM\CHOLECALCIFEROL
     Dosage: 600MG-12.5
  4. VALACYCLOVIR [Concomitant]
     Active Substance: VALACYCLOVIR HYDROCHLORIDE
  5. TRIAZOLAM [Concomitant]
     Active Substance: TRIAZOLAM
  6. SOOTHE LUBRICANT [Concomitant]
  7. TACROLIMUS [Concomitant]
     Active Substance: TACROLIMUS
  8. IBUPROFEN [Concomitant]
     Active Substance: IBUPROFEN
  9. TYLENOL [Concomitant]
     Active Substance: ACETAMINOPHEN
  10. BETAMETHASONE VALERATE [Concomitant]
     Active Substance: BETAMETHASONE VALERATE
  11. BETAMETHASONE DIPROPIONATE [Concomitant]
     Active Substance: BETAMETHASONE DIPROPIONATE
  12. FLUOROMETHOLONE [Concomitant]
     Active Substance: FLUOROMETHOLONE
  13. ERYTHROMYCIN [Concomitant]
     Active Substance: ERYTHROMYCIN
  14. RESTASIS [Concomitant]
     Active Substance: CYCLOSPORINE
  15. COMBIGAN [Concomitant]
     Active Substance: BRIMONIDINE TARTRATE\TIMOLOL MALEATE
     Dosage: 0.2%-0.5%
  16. PROLIA [Concomitant]
     Active Substance: DENOSUMAB
     Dosage: SYRINGE
  17. METHOTREXATE [Concomitant]
     Active Substance: METHOTREXATE
  18. UNSPECIFIED INGREDIENT [Concomitant]
     Active Substance: UNSPECIFIED INGREDIENT
  19. MOXIFLOXACIN [Concomitant]
     Active Substance: MOXIFLOXACIN
  20. POLYMIXIN B TRIMETHOPRIM [Concomitant]
  21. BACITRACIN [Concomitant]
     Active Substance: BACITRACIN

REACTIONS (9)
  - Eye pain [Not Recovered/Not Resolved]
  - Condition aggravated [Unknown]
  - Eye swelling [Not Recovered/Not Resolved]
  - Eye discharge [Not Recovered/Not Resolved]
  - Vision blurred [Unknown]
  - Ocular hyperaemia [Unknown]
  - Erythema of eyelid [Unknown]
  - Photophobia [Unknown]
  - Eye infection [Unknown]
